FAERS Safety Report 11382205 (Version 1)
Quarter: 2015Q3

REPORT INFORMATION
  Report Type: Spontaneous
  Country: US (occurrence: US)
  Receive Date: 20150811
  Receipt Date: 20150811
  Transmission Date: 20151125
  Serious: No
  Sender: FDA-Public Use
  Company Number: US-ELI_LILLY_AND_COMPANY-US200912001920

PATIENT
  Age: 56 Year
  Sex: Male

DRUGS (2)
  1. CIALIS [Suspect]
     Active Substance: TADALAFIL
     Dosage: 2.5 MG, DAILY (1/D)
     Route: 065
     Dates: start: 20091128
  2. CIALIS [Suspect]
     Active Substance: TADALAFIL
     Indication: ERECTILE DYSFUNCTION
     Dosage: 10 MG, AS NEEDED
     Route: 065
     Dates: start: 2008, end: 20091114

REACTIONS (6)
  - Nasal congestion [Recovered/Resolved]
  - Rhinorrhoea [Recovered/Resolved]
  - Malaise [Unknown]
  - Therapeutic response decreased [Unknown]
  - Expired product administered [Recovered/Resolved]
  - Flushing [Recovered/Resolved]

NARRATIVE: CASE EVENT DATE: 200911
